FAERS Safety Report 7978463-4 (Version None)
Quarter: 2011Q4

REPORT INFORMATION
  Report Type: 
  Country: None (occurrence: None)
  Receive Date: 20111214
  Receipt Date: 20111212
  Transmission Date: 20120403
  Serious: Yes (Death, Other)
  Sender: FDA-Public Use
  Company Number: US-BAYER-2011-109521

PATIENT
  Age: 66 Year
  Sex: Male
  Weight: 63.4 kg

DRUGS (38)
  1. SORAFENIB (RAF KINASE INHIBITOR) [Suspect]
     Indication: SMALL CELL LUNG CANCER STAGE UNSPECIFIED
     Dosage: 200 MG, BID
     Route: 048
     Dates: start: 20111004, end: 20111017
  2. ETOPOSIDE [Suspect]
     Dosage: 201.6 MG IN 500 ML NS OVER 60 MINUTES
     Route: 042
     Dates: start: 20111004, end: 20111004
  3. ETOPOSIDE [Suspect]
     Dosage: 201.6 MG IN 500 ML NS OVER 60 MINUTES
     Route: 042
     Dates: start: 20111027, end: 20111027
  4. DEXAMETHASONE [Concomitant]
     Indication: PREMEDICATION
     Dosage: 16 MG IN 50 ML D5W
     Route: 042
     Dates: start: 20111004, end: 20111004
  5. DEXAMETHASONE [Concomitant]
     Dosage: 8 MG, UNK
     Route: 042
     Dates: start: 20111026, end: 20111027
  6. COMPAZINE [Concomitant]
     Indication: NAUSEA
     Dosage: 10 MG, QID, PRN
     Route: 048
     Dates: start: 20110929
  7. LACTULOSE [Concomitant]
     Indication: CONSTIPATION
     Dosage: 30 ML, PRN
     Route: 048
     Dates: start: 20111011
  8. ETOPOSIDE [Suspect]
     Dosage: 201.6 MG OVER 60 MINUTES
     Route: 042
     Dates: start: 20111006, end: 20111006
  9. EMEND [Concomitant]
     Dosage: 150 MG, UNK
     Route: 042
     Dates: start: 20111025, end: 20111025
  10. ATIVAN [Concomitant]
     Indication: ANXIETY
     Dosage: 0.5 MG - 1.0 MG
     Dates: start: 20110913
  11. ZOFRAN [Concomitant]
     Dosage: 12 MG, UNK
     Route: 042
     Dates: start: 20111005, end: 20111006
  12. SORAFENIB (RAF KINASE INHIBITOR) [Suspect]
     Dosage: 200 MG, QD
     Route: 048
     Dates: start: 20111021, end: 20111103
  13. CISPLATIN [Suspect]
     Dosage: 100.8 MG IN 150 ML NORMALE SALINE OVER 39 MINUTES
     Route: 042
     Dates: start: 20111025, end: 20111025
  14. DEXAMETHASONE [Concomitant]
     Dosage: 8 MG, UNK
     Route: 042
     Dates: start: 20111005, end: 20111006
  15. VENTOLIN [Concomitant]
     Dosage: 108 (90 BASE) MCG
     Dates: start: 20110909
  16. IMODIUM [Concomitant]
     Indication: DIARRHOEA
     Dosage: UNK
     Dates: start: 20111004
  17. CISPLATIN [Suspect]
     Dosage: 100.8 MG IN 150 ML NORMALE SALINE OVER 39 MINUTES
     Route: 042
     Dates: start: 20111004, end: 20111004
  18. ETOPOSIDE [Suspect]
     Dosage: 201.6 MG OVER 60 MINUTES
     Route: 042
     Dates: start: 20111005, end: 20111005
  19. ALOXI [Concomitant]
     Dosage: 0.25 MG, UNK
     Dates: start: 20111025, end: 20111025
  20. POTASSIUM CHLORIDE [Concomitant]
     Dosage: 1/2 NORMALE SALINE + 20 MEQ KCL/LITER AT 500 ML OVER 1 HOUR
     Dates: start: 20111004, end: 20111004
  21. PREDNISONE [Concomitant]
     Indication: LUNG NEOPLASM MALIGNANT
     Dosage: 10 MG, QD
     Route: 048
     Dates: start: 20110913, end: 20111018
  22. ALLOPURINOL [Concomitant]
     Indication: BLOOD URIC ACID ABNORMAL
     Dosage: 100 MG, QD
     Route: 048
     Dates: start: 20111004
  23. LISINOPRIL [Concomitant]
     Indication: HYPERTENSION
     Dosage: 10 MG, QD
     Route: 048
     Dates: start: 20111018
  24. SODIUM CHLORIDE [Concomitant]
     Dosage: 1/2 NORMALE SALINE + 20 MEQ KCL/LITER AT 250 ML OVER 1 HOUR
     Route: 042
     Dates: start: 20111025, end: 20111025
  25. ETOPOSIDE [Suspect]
     Dosage: 201.6 MG IN 500 ML NS OVER 60 MINUTES
     Route: 042
     Dates: start: 20111026, end: 20111026
  26. ALOXI [Concomitant]
     Indication: PREMEDICATION
     Dosage: 0.25 MG, UNK
     Dates: start: 20111004, end: 20111004
  27. DEXAMETHASONE [Concomitant]
     Dosage: 16 MG IN 50 ML D5W
     Route: 042
     Dates: start: 20111025, end: 20111025
  28. POTASSIUM CHLORIDE [Concomitant]
     Dosage: 1/2 NORMALE SALINE + 20 MEQ KCL/LITER AT 250 ML OVER 1 HOUR
     Dates: start: 20111025, end: 20111025
  29. ADVAIR DISKUS 100/50 [Concomitant]
     Dosage: 100/50, BID
     Route: 055
     Dates: start: 20110909
  30. VICODIN [Concomitant]
     Indication: CHEST PAIN
     Dosage: 5-500 (1-1/2 TAB)
     Dates: start: 20110913
  31. NICODERM [Concomitant]
     Indication: EX-TOBACCO USER
     Dosage: PATCH 23-SEP-2011 (DID NOT START)
     Route: 062
  32. ZOFRAN [Concomitant]
     Indication: NAUSEA
     Dosage: 8 MG, TID, PRN
     Route: 048
     Dates: start: 20110929
  33. ACYCLOVIR [Concomitant]
     Indication: ORAL PAIN
     Dosage: 400 MG, BID
     Route: 048
     Dates: start: 20111011, end: 20111018
  34. MAGIC MOUTHWASH [Concomitant]
     Indication: ORAL PAIN
     Dosage: SWISH AND SWALLOW
     Dates: start: 20111011
  35. ETOPOSIDE [Suspect]
     Dosage: 201.6 MG IN 500 ML NS OVER 60 MINUTES
     Route: 042
     Dates: start: 20111025, end: 20111025
  36. EMEND [Concomitant]
     Indication: PREMEDICATION
     Dosage: 150 MG, UNK
     Route: 042
     Dates: start: 20111004, end: 20111004
  37. SODIUM CHLORIDE [Concomitant]
     Dosage: 1/2 NORMALE SALINE + 20 MEQ KCL/LITER AT 500 ML OVER 1 HOUR
     Route: 042
     Dates: start: 20111004, end: 20111004
  38. PAXIL [Concomitant]
     Indication: DEPRESSION
     Dosage: 20 MG, QD
     Route: 048
     Dates: start: 20110909

REACTIONS (3)
  - NEUTROPENIA [None]
  - CARDIAC ARREST [None]
  - HAEMOPTYSIS [None]
